FAERS Safety Report 14527348 (Version 15)
Quarter: 2022Q1

REPORT INFORMATION
  Report Type: Spontaneous
  Country: FR (occurrence: FR)
  Receive Date: 20180213
  Receipt Date: 20220124
  Transmission Date: 20220424
  Serious: Yes (Death, Hospitalization, Other)
  Sender: FDA-Public Use
  Company Number: FR-TAKEDA-2017TEU002474

PATIENT
  Age: 71 Year
  Sex: Male
  Weight: 113.4 kg

DRUGS (58)
  1. VANCOMYCIN [Suspect]
     Active Substance: VANCOMYCIN
     Indication: Skin infection
     Dosage: UNK
     Route: 065
  2. VANCOMYCIN [Suspect]
     Active Substance: VANCOMYCIN
     Indication: Chest scan
  3. TRAMADOL [Suspect]
     Active Substance: TRAMADOL
     Indication: Product used for unknown indication
     Dosage: 8 DF, QD
     Route: 048
     Dates: start: 20161201, end: 20170119
  4. TRAMADOL [Suspect]
     Active Substance: TRAMADOL
     Dosage: 4, QD, UNK,QID
     Route: 048
     Dates: start: 20161201, end: 20170119
  5. ACETAMINOPHEN\TRAMADOL [Suspect]
     Active Substance: ACETAMINOPHEN\TRAMADOL
     Indication: Chest scan
     Dosage: 8 DOSAGE FORM, QD, 8 DF, QD
     Route: 048
     Dates: start: 20161201, end: 20170119
  6. ACETAMINOPHEN\TRAMADOL [Suspect]
     Active Substance: ACETAMINOPHEN\TRAMADOL
     Indication: Skin infection
     Dosage: 2 DF, QD
     Dates: start: 20161201, end: 20170119
  7. LINEZOLID [Suspect]
     Active Substance: LINEZOLID
     Indication: Skin infection
     Dosage: 600 MG, BID(1200 MG QD)
     Route: 048
     Dates: start: 20161222, end: 20170110
  8. LINEZOLID [Suspect]
     Active Substance: LINEZOLID
     Indication: Chest scan
     Dosage: 1200 MILLIGRAM, QD (1200 MG, QD (600 MG, BID))
     Route: 048
     Dates: start: 20161222, end: 20170110
  9. PIPERACILLIN SODIUM\TAZOBACTAM SODIUM [Suspect]
     Active Substance: PIPERACILLIN SODIUM\TAZOBACTAM SODIUM
     Indication: Skin infection
     Dosage: 3 DF, TID
     Route: 042
     Dates: start: 20161204, end: 20170130
  10. PIPERACILLIN SODIUM\TAZOBACTAM SODIUM [Suspect]
     Active Substance: PIPERACILLIN SODIUM\TAZOBACTAM SODIUM
     Indication: Chest scan
     Dosage: 3 DOSAGE FORM, QD, 3 DF, QD (1 DF, 3X/DAY)
     Route: 042
     Dates: start: 20161204, end: 20170130
  11. NEFOPAM [Suspect]
     Active Substance: NEFOPAM
     Indication: Chest scan
     Dosage: UNK
     Route: 042
     Dates: start: 20161202, end: 20170119
  12. NEFOPAM [Suspect]
     Active Substance: NEFOPAM
     Indication: Skin infection
  13. ACETAMINOPHEN [Suspect]
     Active Substance: ACETAMINOPHEN
     Indication: Product used for unknown indication
     Dosage: 8 DF, QD
     Route: 048
     Dates: start: 20161201, end: 20170119
  14. METOCLOPRAMIDE [Suspect]
     Active Substance: METOCLOPRAMIDE
     Indication: Chest scan
     Dosage: 30 MG, QD
     Route: 048
  15. METOCLOPRAMIDE [Suspect]
     Active Substance: METOCLOPRAMIDE
     Indication: Skin infection
  16. VANCOMYCIN [Suspect]
     Active Substance: VANCOMYCIN
     Indication: Skin infection
     Dosage: UNK
     Route: 065
  17. VANCOMYCIN [Suspect]
     Active Substance: VANCOMYCIN
     Indication: Chest scan
  18. PIPERACILLIN SODIUM\TAZOBACTAM SODIUM [Suspect]
     Active Substance: PIPERACILLIN SODIUM\TAZOBACTAM SODIUM
     Indication: Product used for unknown indication
     Dosage: 1 DF, TID
     Route: 042
     Dates: start: 20161204, end: 20170130
  19. RACECADOTRIL [Suspect]
     Active Substance: RACECADOTRIL
     Indication: Skin infection
     Dosage: 100 MG, TID(300 MG QD)
     Route: 048
     Dates: start: 20161209, end: 20170119
  20. RACECADOTRIL [Suspect]
     Active Substance: RACECADOTRIL
     Indication: Chest scan
     Dosage: 3 DOSAGE FORM, QD
     Route: 048
     Dates: start: 20161209, end: 20170119
  21. RACECADOTRIL [Suspect]
     Active Substance: RACECADOTRIL
     Dosage: 300 MILLIGRAM, QD, (100 MG, TID (1 DF)
     Route: 048
     Dates: start: 20161209, end: 20170119
  22. PANTOPRAZOLE [Suspect]
     Active Substance: PANTOPRAZOLE
     Indication: Chest scan
     Dosage: UNK
     Route: 042
     Dates: start: 20161225, end: 20170119
  23. PANTOPRAZOLE [Suspect]
     Active Substance: PANTOPRAZOLE
     Indication: Skin infection
  24. RIFAMPIN [Suspect]
     Active Substance: RIFAMPIN
     Indication: Chest scan
     Dosage: UNK
     Route: 065
  25. RIFAMPIN [Suspect]
     Active Substance: RIFAMPIN
     Indication: Skin infection
  26. ULTRAVIST [Suspect]
     Active Substance: IOPROMIDE
     Indication: Chest scan
     Dosage: 370 MILLIGRAM (370 MG, UNK)
     Route: 042
     Dates: start: 20170116, end: 20170116
  27. ULTRAVIST [Suspect]
     Active Substance: IOPROMIDE
     Indication: Skin infection
     Dosage: UNK
     Route: 042
  28. QUESTRAN [Suspect]
     Active Substance: CHOLESTYRAMINE
     Indication: Skin infection
     Dosage: 4 G, QD
     Route: 048
     Dates: start: 20161216, end: 20170119
  29. QUESTRAN [Suspect]
     Active Substance: CHOLESTYRAMINE
     Indication: Chest scan
     Dosage: 1 DF, QD
     Route: 048
     Dates: start: 20161216, end: 20170119
  30. QUESTRAN [Suspect]
     Active Substance: CHOLESTYRAMINE
     Dosage: 4 G, QD
     Route: 048
     Dates: start: 20161216, end: 20170119
  31. PRIMPERAN [Suspect]
     Active Substance: METOCLOPRAMIDE HYDROCHLORIDE
     Indication: Chest scan
     Dosage: 30 MG, QD (10 MG, TID (3 DF, TID (1 DF TID)))
     Route: 048
     Dates: start: 20161224, end: 20170119
  32. PRIMPERAN [Suspect]
     Active Substance: METOCLOPRAMIDE HYDROCHLORIDE
     Indication: Skin infection
     Dosage: 9 DOSAGE FORM, QD
     Route: 048
     Dates: start: 20161224, end: 20170119
  33. CUBICIN [Suspect]
     Active Substance: DAPTOMYCIN
     Indication: Chest scan
     Dosage: 800 MILLIGRAM, QD (800 MG, QD)
     Route: 042
     Dates: start: 20170110, end: 20170201
  34. CUBICIN [Suspect]
     Active Substance: DAPTOMYCIN
     Indication: Skin infection
     Dosage: 800 MG, QD
     Route: 042
  35. RIFADIN [Suspect]
     Active Substance: RIFAMPIN
     Indication: Chest scan
     Dosage: UNK
     Route: 065
  36. RIFADIN [Suspect]
     Active Substance: RIFAMPIN
     Indication: Skin infection
  37. BUDESONIDE\FORMOTEROL FUMARATE [Suspect]
     Active Substance: BUDESONIDE\FORMOTEROL FUMARATE
     Indication: Product used for unknown indication
     Dosage: 1 DOSAGE FORM, QD (1 DF, QD)
     Route: 055
     Dates: start: 20161220, end: 20170119
  38. LINEZOLID [Suspect]
     Active Substance: LINEZOLID
     Indication: Skin infection
     Dosage: 600 MG, BID
     Route: 048
     Dates: start: 20161222, end: 20170110
  39. LINEZOLID [Suspect]
     Active Substance: LINEZOLID
     Indication: Chest scan
     Dosage: 2 DOSAGE FORM, QD (600 MG, BID)
     Route: 048
     Dates: start: 20161222, end: 20170110
  40. DAPTOMYCIN [Suspect]
     Active Substance: DAPTOMYCIN
     Indication: Chest scan
     Dosage: 800 MILLIGRAM, QD (800 MG, 1X/DAY)
     Route: 042
     Dates: start: 20170110
  41. DAPTOMYCIN [Suspect]
     Active Substance: DAPTOMYCIN
     Indication: Skin infection
     Dosage: 800 MILLIGRAM, QD (800 MG, 1X/DAY)
     Route: 042
     Dates: start: 20170110, end: 20170201
  42. CHOLESTYRAMINE [Suspect]
     Active Substance: CHOLESTYRAMINE
     Indication: Chest scan
     Dosage: UNK
  43. CHOLESTYRAMINE [Suspect]
     Active Substance: CHOLESTYRAMINE
     Indication: Skin infection
  44. DUPHALAC [Concomitant]
     Active Substance: LACTULOSE
     Indication: Product used for unknown indication
     Dosage: UNK
     Route: 065
  45. KARDEGIC [Concomitant]
     Active Substance: ASPIRIN DL-LYSINE
     Indication: Product used for unknown indication
     Dosage: UNK
     Route: 065
  46. INSULIN HUMAN [Concomitant]
     Active Substance: INSULIN HUMAN
     Indication: Product used for unknown indication
     Dosage: UNK
     Route: 065
  47. LOPERAMIDE [Concomitant]
     Active Substance: LOPERAMIDE
     Indication: Product used for unknown indication
     Dosage: UNK
     Route: 065
  48. FUROSEMIDE [Concomitant]
     Active Substance: FUROSEMIDE
     Indication: Product used for unknown indication
     Dosage: UNK
     Route: 065
  49. LANTUS [Concomitant]
     Active Substance: INSULIN GLARGINE
     Indication: Product used for unknown indication
     Dosage: UNK
     Route: 065
  50. POTASSIUM CHLORIDE [Concomitant]
     Active Substance: POTASSIUM CHLORIDE
     Indication: Product used for unknown indication
     Dosage: UNK
     Route: 065
  51. LOVENOX [Concomitant]
     Active Substance: ENOXAPARIN SODIUM
     Indication: Product used for unknown indication
     Dosage: UNK
     Route: 065
     Dates: start: 20170114
  52. LOVENOX [Concomitant]
     Active Substance: ENOXAPARIN SODIUM
     Dosage: UNK
     Route: 065
  53. POLARAMINE [Concomitant]
     Active Substance: DEXCHLORPHENIRAMINE MALEATE
     Indication: Product used for unknown indication
     Dosage: UNK
     Route: 065
  54. Lopram [Concomitant]
     Indication: Product used for unknown indication
     Dosage: UNK
     Route: 065
  55. LOPERAMIDE [Concomitant]
     Active Substance: LOPERAMIDE
     Indication: Product used for unknown indication
     Dosage: UNK
  56. INSULIN HUMAN [Concomitant]
     Active Substance: INSULIN HUMAN
     Dosage: UNK
  57. POTASSIUM CHLORIDE [Concomitant]
     Active Substance: POTASSIUM CHLORIDE
     Dosage: UNK
  58. LEVOFLOXACIN [Concomitant]
     Active Substance: LEVOFLOXACIN
     Dosage: UNK

REACTIONS (18)
  - Death [Fatal]
  - Sepsis [Fatal]
  - Rectal haemorrhage [Fatal]
  - Pulmonary interstitial emphysema syndrome [Fatal]
  - Glomerular filtration rate decreased [Fatal]
  - Alveolar lung disease [Fatal]
  - Eosinophilic pneumonia [Fatal]
  - Hyperammonaemia [Fatal]
  - Generalised oedema [Fatal]
  - Eczema [Fatal]
  - Restlessness [Fatal]
  - Hepatic encephalopathy [Fatal]
  - Diffuse alveolar damage [Fatal]
  - Acute kidney injury [Fatal]
  - Eosinophilia [Fatal]
  - Rash maculo-papular [Fatal]
  - Dyspnoea [Fatal]
  - Thrombocytopenia [Fatal]

NARRATIVE: CASE EVENT DATE: 20161227
